FAERS Safety Report 6146915-8 (Version None)
Quarter: 2009Q2

REPORT INFORMATION
  Report Type: 
  Country: None (occurrence: None)
  Receive Date: 20090403
  Receipt Date: 20090326
  Transmission Date: 20091009
  Serious: Yes (Other)
  Sender: FDA-Public Use
  Company Number: 451585

PATIENT
  Age: 55 Year
  Sex: Male
  Weight: 86.1834 kg

DRUGS (8)
  1. TING POWDER SPRAY [Suspect]
     Indication: TINEA CRURIS
     Dosage: RANDOM USE PAST FEW YEARS
  2. AVAPRO [Concomitant]
  3. LIPITOR [Concomitant]
  4. FUROSEMIDE [Concomitant]
  5. CARBEDILOL [Concomitant]
  6. LANTIS [Concomitant]
  7. LANTIS [Concomitant]
  8. NOVOLOG [Concomitant]

REACTIONS (1)
  - RENAL FAILURE [None]
